FAERS Safety Report 13124608 (Version 6)
Quarter: 2018Q3

REPORT INFORMATION
  Report Type: Spontaneous
  Country: US (occurrence: US)
  Receive Date: 20170118
  Receipt Date: 20180928
  Transmission Date: 20181010
  Serious: No
  Sender: FDA-Public Use
  Company Number: US-PFIZER INC-2017022163

PATIENT
  Age: 77 Year
  Sex: Female
  Weight: 86.18 kg

DRUGS (3)
  1. LYRICA [Suspect]
     Active Substance: PREGABALIN
     Dosage: 100 MG, UNK (TWO A DAY)
  2. LYRICA [Suspect]
     Active Substance: PREGABALIN
     Dosage: 100 MG, UNK (ONLY TOOK ONE PILL ON AN UNSPECIFIED WEEK)
  3. LYRICA [Suspect]
     Active Substance: PREGABALIN
     Indication: FIBROMYALGIA
     Dosage: 400 MG, 1X/DAY (2 PILLS A DAY, ONE IN MORNING AND ONE IN EVENING)

REACTIONS (5)
  - Paraesthesia [Unknown]
  - Burning sensation [Unknown]
  - Intentional product use issue [Unknown]
  - Influenza like illness [Unknown]
  - Pruritus [Unknown]

NARRATIVE: CASE EVENT DATE: 2017
